FAERS Safety Report 8890164 (Version 1)
Quarter: 2012Q4

REPORT INFORMATION
  Report Type: 
  Country: CA (occurrence: CA)
  Receive Date: 20121106
  Receipt Date: 20121106
  Transmission Date: 20130627
  Serious: Yes (Hospitalization, Other)
  Sender: FDA-Public Use
  Company Number: PHMT2006CA02105

PATIENT
  Sex: Male

DRUGS (7)
  1. ZOMETA [Suspect]
     Indication: MULTIPLE MYELOMA
     Dosage: 4 mg, QMO
     Route: 042
     Dates: start: 20060726, end: 20061023
  2. CITALOPRAM [Concomitant]
  3. FUCIDIN /UNK/ [Concomitant]
  4. INHIBACE [Concomitant]
  5. REMINYL [Concomitant]
  6. FOSAMAX [Concomitant]
  7. NORVASC                                 /DEN/ [Suspect]

REACTIONS (7)
  - Gastric ulcer [Unknown]
  - Gastric ulcer haemorrhage [Unknown]
  - Haemoglobin decreased [Unknown]
  - Red blood cell count decreased [Unknown]
  - Haematocrit decreased [Unknown]
  - Blood calcium decreased [Unknown]
  - Blood urea increased [Unknown]
